FAERS Safety Report 8764804 (Version 3)
Quarter: 2013Q2

REPORT INFORMATION
  Report Type: Spontaneous
  Country: US (occurrence: US)
  Receive Date: 20120831
  Receipt Date: 20130611
  Transmission Date: 20140414
  Serious: Yes (Other)
  Sender: FDA-Public Use
  Company Number: CHPA2012US017741

PATIENT
  Age: 83 Year
  Sex: Male

DRUGS (3)
  1. VOLTAREN GEL [Suspect]
     Indication: OSTEOARTHRITIS
     Dosage: UNK, (3-4 GRAMS 3 TIMES A DAY)
     Route: 061
  2. PREDNISONE [Suspect]
     Indication: POLYMYALGIA RHEUMATICA
  3. CARVEDILOL [Concomitant]
     Dosage: 6.25 MG, BID
     Dates: start: 20120723

REACTIONS (8)
  - Abasia [Unknown]
  - Dysstasia [Not Recovered/Not Resolved]
  - Tendon rupture [Unknown]
  - Nervousness [Unknown]
  - Off label use [Unknown]
  - Drug ineffective [Unknown]
  - Underdose [Unknown]
  - Inappropriate schedule of drug administration [Unknown]
